FAERS Safety Report 24235899 (Version 2)
Quarter: 2024Q3

REPORT INFORMATION
  Report Type: Spontaneous
  Country: US (occurrence: US)
  Receive Date: 20240822
  Receipt Date: 20240906
  Transmission Date: 20241016
  Serious: Yes (Other)
  Sender: TEVA
  Company Number: US-TEVA-VS-3234151

PATIENT
  Age: 72 Year
  Sex: Male

DRUGS (1)
  1. TESTOSTERONE [Suspect]
     Active Substance: TESTOSTERONE
     Indication: Primary hypogonadism
     Dosage: 250 MG/ML EVERY 7 10 DAYS
     Route: 065

REACTIONS (4)
  - Prostate cancer metastatic [Unknown]
  - Intentional product misuse [Unknown]
  - Invasive ductal breast carcinoma [Unknown]
  - Prostate cancer recurrent [Unknown]
